FAERS Safety Report 5098601-3 (Version None)
Quarter: 2006Q3

REPORT INFORMATION
  Report Type: 
  Country: None (occurrence: None)
  Receive Date: 20060907
  Receipt Date: 20060727
  Transmission Date: 20061208
  Serious: Yes (Life-Threatening, Hospitalization)
  Sender: FDA-Public Use
  Company Number: US-BRISTOL-MYERS SQUIBB COMPANY-13457098

PATIENT
  Age: 61 Year
  Sex: Female
  Weight: 52 kg

DRUGS (14)
  1. CISPLATIN [Suspect]
     Indication: OESOPHAGEAL CARCINOMA
     Route: 042
     Dates: start: 20060720, end: 20060720
  2. ERBITUX [Suspect]
     Indication: OESOPHAGEAL CARCINOMA
     Route: 042
     Dates: start: 20060717, end: 20060717
  3. IRINOTECAN HCL [Suspect]
     Indication: OESOPHAGEAL CARCINOMA
     Route: 042
     Dates: start: 20060717, end: 20060717
  4. RADIATION THERAPY [Suspect]
     Indication: OESOPHAGEAL CARCINOMA
     Dates: start: 20060710, end: 20060720
  5. MIRALAX [Concomitant]
  6. FOSAMAX [Concomitant]
  7. ATIVAN [Concomitant]
  8. CLONAZEPAM [Concomitant]
  9. COMPAZINE [Concomitant]
  10. IMODIUM [Concomitant]
  11. REGLAN [Concomitant]
  12. VITAMIN B-12 [Concomitant]
  13. ZOFRAN [Concomitant]
  14. CLINDAGEL [Concomitant]

REACTIONS (8)
  - ASTHENIA [None]
  - FATIGUE [None]
  - INCONTINENCE [None]
  - LEUKOPENIA [None]
  - NAUSEA [None]
  - NEUTROPHIL COUNT DECREASED [None]
  - OESOPHAGITIS [None]
  - PYREXIA [None]
